FAERS Safety Report 5945179-5 (Version None)
Quarter: 2008Q4

REPORT INFORMATION
  Report Type: 
  Country: None (occurrence: None)
  Receive Date: 20081107
  Receipt Date: 20081103
  Transmission Date: 20090506
  Serious: Yes (Hospitalization)
  Sender: FDA-Public Use
  Company Number: B0543853A

PATIENT
  Age: 43 Year
  Sex: Female

DRUGS (2)
  1. TYVERB [Suspect]
     Dosage: 1250MG PER DAY
     Route: 048
     Dates: start: 20080315
  2. XELODA [Suspect]
     Dosage: 1500MG CYCLIC
     Route: 048
     Dates: start: 20080315

REACTIONS (4)
  - BLOOD THYROID STIMULATING HORMONE INCREASED [None]
  - THYROID DISORDER [None]
  - THYROIDITIS [None]
  - THYROXINE DECREASED [None]
